FAERS Safety Report 21973138 (Version 1)
Quarter: 2023Q1

REPORT INFORMATION
  Report Type: Spontaneous
  Country: JP (occurrence: JP)
  Receive Date: 20230209
  Receipt Date: 20230209
  Transmission Date: 20230418
  Serious: Yes (Other)
  Sender: FDA-Public Use
  Company Number: JP-PFIZER INC-PV202300023852

PATIENT
  Age: 12 Year
  Sex: Male

DRUGS (4)
  1. HYDROXYZINE PAMOATE [Suspect]
     Active Substance: HYDROXYZINE PAMOATE
     Indication: Crohn^s disease
  2. PENTAZOCINE [Suspect]
     Active Substance: PENTAZOCINE
     Indication: Crohn^s disease
  3. ACETAMINOPHEN [Suspect]
     Active Substance: ACETAMINOPHEN
     Indication: Crohn^s disease
  4. MESALAMINE [Concomitant]
     Active Substance: MESALAMINE

REACTIONS (3)
  - Drug hypersensitivity [Recovering/Resolving]
  - Disseminated intravascular coagulation [Recovering/Resolving]
  - Off label use [Unknown]
